FAERS Safety Report 11160275 (Version 9)
Quarter: 2016Q3

REPORT INFORMATION
  Report Type: Report from Study
  Country: CA (occurrence: CA)
  Receive Date: 20150603
  Receipt Date: 20160919
  Transmission Date: 20161109
  Serious: Yes (Hospitalization)
  Sender: FDA-Public Use
  Company Number: PHHY2015CA065555

PATIENT
  Age: 73 Year
  Sex: Female

DRUGS (2)
  1. SANDOSTATIN LAR DEPOT [Suspect]
     Active Substance: OCTREOTIDE ACETATE
     Indication: GASTROINTESTINAL ANGIODYSPLASIA
     Dosage: 20 MG, QMO (ONCE A MONTH)
     Route: 030
     Dates: start: 20150429
  2. SANDOSTATIN [Suspect]
     Active Substance: OCTREOTIDE ACETATE
     Indication: GASTROINTESTINAL ANGIODYSPLASIA
     Dosage: 50 UG, BID (CONT. 2 WEEKS AFTER 1ST SAS LAR)
     Route: 058
     Dates: start: 20150408, end: 201505

REACTIONS (19)
  - Fatigue [Unknown]
  - Pain [Unknown]
  - Weight increased [Unknown]
  - Product use issue [Unknown]
  - Diabetes mellitus [Unknown]
  - Dyspnoea [Unknown]
  - Vertigo [Unknown]
  - Visual impairment [Unknown]
  - Dizziness [Unknown]
  - Haemoglobin decreased [Unknown]
  - Asthenia [Unknown]
  - Dysgraphia [Unknown]
  - Hypotension [Unknown]
  - Nausea [Unknown]
  - Blood pressure systolic increased [Unknown]
  - Heart rate decreased [Unknown]
  - Fall [Unknown]
  - Pulmonary oedema [Unknown]
  - Blood pressure diastolic decreased [Unknown]

NARRATIVE: CASE EVENT DATE: 201505
